FAERS Safety Report 20307796 (Version 1)
Quarter: 2022Q1

REPORT INFORMATION
  Report Type: Spontaneous
  Country: US (occurrence: US)
  Receive Date: 20220107
  Receipt Date: 20220107
  Transmission Date: 20220423
  Serious: No
  Sender: FDA-Public Use
  Company Number: US-ALLERGAN-2139824US

PATIENT
  Age: 56 Year
  Sex: Male

DRUGS (8)
  1. QULIPTA [Suspect]
     Active Substance: ATOGEPANT
     Indication: Migraine
     Dosage: 30 MG, QD
     Route: 048
     Dates: start: 20211103, end: 20211111
  2. QULIPTA [Suspect]
     Active Substance: ATOGEPANT
     Indication: Headache
  3. ALEVE [Concomitant]
     Active Substance: NAPROXEN SODIUM
     Indication: Migraine
  4. PEPCID [Concomitant]
     Active Substance: FAMOTIDINE
     Indication: Gastrointestinal disorder
  5. PEPCID [Concomitant]
     Active Substance: FAMOTIDINE
     Indication: Pancreatitis
  6. REGLAN [Concomitant]
     Active Substance: METOCLOPRAMIDE HYDROCHLORIDE
     Indication: Gastrointestinal disorder
  7. REGLAN [Concomitant]
     Active Substance: METOCLOPRAMIDE HYDROCHLORIDE
     Indication: Pancreatitis
  8. SEROQUEL [Concomitant]
     Active Substance: QUETIAPINE FUMARATE
     Indication: Insomnia
     Dosage: UNK, QHS

REACTIONS (4)
  - Therapy interrupted [Unknown]
  - Nausea [Recovered/Resolved]
  - Drug ineffective [Unknown]
  - Migraine [Not Recovered/Not Resolved]

NARRATIVE: CASE EVENT DATE: 20211103
